FAERS Safety Report 13609450 (Version 2)
Quarter: 2017Q2

REPORT INFORMATION
  Report Type: Spontaneous
  Country: US (occurrence: US)
  Receive Date: 20170602
  Receipt Date: 20170605
  Transmission Date: 20170830
  Serious: No
  Sender: FDA-Public Use
  Company Number: US-PFIZER INC-2862976

PATIENT
  Age: 52 Year
  Sex: Female
  Weight: 65.31 kg

DRUGS (1)
  1. KETOROLAC TROMETHAMINE. [Suspect]
     Active Substance: KETOROLAC TROMETHAMINE
     Indication: MIGRAINE
     Dosage: AS NEEDED, FREQ: 1 DAY; INTERVAL: 1
     Route: 030
     Dates: start: 20150501

REACTIONS (5)
  - Poor quality drug administered [Recovered/Resolved]
  - Burning sensation [Recovered/Resolved]
  - Drug ineffective [Unknown]
  - Injection site pain [Recovered/Resolved]
  - Product impurity [Recovered/Resolved]

NARRATIVE: CASE EVENT DATE: 20150501
